FAERS Safety Report 20683136 (Version 2)
Quarter: 2022Q2

REPORT INFORMATION
  Report Type: Report from Study
  Country: US (occurrence: US)
  Receive Date: 20220407
  Receipt Date: 20220629
  Transmission Date: 20220721
  Serious: Yes (Other)
  Sender: FDA-Public Use
  Company Number: US-BRISTOL-MYERS SQUIBB COMPANY-2022-014184

PATIENT
  Age: 59 Year
  Sex: Male
  Weight: 83.77 kg

DRUGS (2)
  1. REVLIMID [Suspect]
     Active Substance: LENALIDOMIDE
     Indication: Plasma cell myeloma
     Route: 048
  2. REVLIMID [Suspect]
     Active Substance: LENALIDOMIDE
     Dosage: FREQUENCY: DAYS 1-14 DAYS, 7 DAYS OFF
     Route: 048
     Dates: start: 202202

REACTIONS (2)
  - Back pain [Recovered/Resolved]
  - Off label use [Unknown]
